FAERS Safety Report 16508263 (Version 1)
Quarter: 2019Q3

REPORT INFORMATION
  Report Type: Spontaneous
  Country: IT (occurrence: IT)
  Receive Date: 20190701
  Receipt Date: 20190701
  Transmission Date: 20191004
  Serious: Yes (Hospitalization, Other)
  Sender: FDA-Public Use
  Company Number: IT-MYLANLABS-2019M1059343

PATIENT
  Age: 83 Year
  Sex: Female

DRUGS (3)
  1. CITALOPRAM [Suspect]
     Active Substance: CITALOPRAM HYDROBROMIDE
     Indication: PRODUCT USED FOR UNKNOWN INDICATION
     Dosage: 200 MILLIGRAM, ONCE
     Route: 048
     Dates: start: 20181003, end: 20181003
  2. LORMETAZEPAM [Suspect]
     Active Substance: LORMETAZEPAM
     Indication: PRODUCT USED FOR UNKNOWN INDICATION
     Dosage: 25 MILLIGRAM, ONCE
     Route: 048
     Dates: start: 20181003, end: 20181003
  3. LEXOTAN [Suspect]
     Active Substance: BROMAZEPAM
     Indication: PRODUCT USED FOR UNKNOWN INDICATION
     Dosage: 9 DOSAGE FORM, ONCE
     Route: 048
     Dates: start: 20181003, end: 20181003

REACTIONS (5)
  - Suicide attempt [Unknown]
  - Fall [Unknown]
  - Drug abuse [Unknown]
  - Bradycardia [Unknown]
  - Benzodiazepine drug level increased [Unknown]

NARRATIVE: CASE EVENT DATE: 20181003
